FAERS Safety Report 6715310-2 (Version None)
Quarter: 2010Q2

REPORT INFORMATION
  Report Type: 
  Country: None (occurrence: None)
  Receive Date: 20100507
  Receipt Date: 20100429
  Transmission Date: 20101027
  Serious: Yes (Death)
  Sender: FDA-Public Use
  Company Number: DE-BRISTOL-MYERS SQUIBB COMPANY-15039068

PATIENT
  Age: 52 Year
  Sex: Male
  Weight: 60 kg

DRUGS (3)
  1. CETUXIMAB [Suspect]
     Indication: NON-SMALL CELL LUNG CANCER
     Dosage: DAY ONE OF CYCLE ONE; 400MG/M2 DAY 1 OF EVERY 3 WEEKS LAST DOESE: 16MAR2010
     Route: 042
     Dates: start: 20100316
  2. CARBOPLATIN [Suspect]
     Indication: NON-SMALL CELL LUNG CANCER
     Dosage: 5 AUC. LAST DOESE: 16MAR2010
     Route: 042
     Dates: start: 20100316
  3. GEMZAR [Suspect]
     Indication: NON-SMALL CELL LUNG CANCER
     Dosage: 1200MG/M2 LAST DOESE: 16MAR2010
     Route: 042
     Dates: start: 20100316

REACTIONS (1)
  - CARDIAC FAILURE [None]
